FAERS Safety Report 9406510 (Version 2)
Quarter: 2013Q3

REPORT INFORMATION
  Report Type: Report from Study
  Country: US (occurrence: US)
  Receive Date: 20130718
  Receipt Date: 20130816
  Transmission Date: 20140515
  Serious: Yes (Hospitalization)
  Sender: FDA-Public Use
  Company Number: US-BRISTOL-MYERS SQUIBB COMPANY-19016997

PATIENT
  Age: 50 Year
  Sex: Female

DRUGS (8)
  1. ARIPIPRAZOLE IM DEPOT [Suspect]
     Indication: SCHIZOPHRENIA
     Route: 030
     Dates: start: 20130122, end: 20130517
  2. AMBIEN [Concomitant]
     Dates: start: 20121227
  3. MOTRIN [Concomitant]
     Dates: start: 20130507
  4. ATIVAN [Concomitant]
     Dosage: 31MAY13
     Route: 048
     Dates: start: 20130315, end: 20130504
  5. ZOLPIDEM [Concomitant]
     Dates: start: 20130601
  6. COGENTIN [Concomitant]
  7. SEROQUEL [Concomitant]
  8. ABILIFY [Concomitant]
     Route: 048

REACTIONS (1)
  - Suicidal ideation [Not Recovered/Not Resolved]
